FAERS Safety Report 18410043 (Version 1)
Quarter: 2020Q4

REPORT INFORMATION
  Report Type: Spontaneous
  Country: AT (occurrence: AT)
  Receive Date: 20201021
  Receipt Date: 20201021
  Transmission Date: 20210114
  Serious: Yes (Other)
  Sender: FDA-Public Use
  Company Number: AT-BAYER-2020-217651

PATIENT
  Sex: Female

DRUGS (1)
  1. KYLEENA [Suspect]
     Active Substance: LEVONORGESTREL
     Dosage: 17.5 ?G PER DAY, CONTINUOUSLY
     Route: 015

REACTIONS (8)
  - Withdrawal syndrome [Unknown]
  - Suicidal ideation [Unknown]
  - Thrombosis [Unknown]
  - Mood swings [Unknown]
  - Fungal infection [Unknown]
  - Bladder pain [Unknown]
  - Visual impairment [Unknown]
  - Abdominal discomfort [Unknown]
